FAERS Safety Report 4680769-1 (Version None)
Quarter: 2005Q2

REPORT INFORMATION
  Report Type: 
  Country: None (occurrence: None)
  Receive Date: 20050601
  Receipt Date: 20050601
  Transmission Date: 20051028
  Serious: Yes (Disabling, Other)
  Sender: FDA-Public Use
  Company Number: None

PATIENT
  Age: 46 Year
  Sex: Female
  Weight: 66.6788 kg

DRUGS (2)
  1. BUTALBITAL/APAP/CAFFINE 50-325-40 ABLE LAB [Suspect]
     Indication: HEADACHE
     Dosage: ONE TABLET PO BID ORAL
     Route: 048
     Dates: start: 20000619, end: 20050528
  2. PROPO-N/APAP 100-650- TEVA [Suspect]
     Indication: HEADACHE
     Dosage: ONE TAB PO BID ORAL
     Route: 048
     Dates: start: 20000620, end: 20050528

REACTIONS (2)
  - ASTHENIA [None]
  - MENTAL DISORDER [None]
